FAERS Safety Report 18284261 (Version 12)
Quarter: 2021Q1

REPORT INFORMATION
  Report Type: Report from Study
  Country: FR (occurrence: FR)
  Receive Date: 20200918
  Receipt Date: 20210119
  Transmission Date: 20210419
  Serious: Yes (Hospitalization)
  Sender: FDA-Public Use
  Company Number: FR-EISAI MEDICAL RESEARCH-EC-2020-080764

PATIENT
  Age: 78 Year
  Sex: Male
  Weight: 79 kg

DRUGS (13)
  1. MK?1308 [Suspect]
     Active Substance: INVESTIGATIONAL PRODUCT
     Route: 041
     Dates: start: 20201019
  2. PEMBROLIZUMAB. [Suspect]
     Active Substance: PEMBROLIZUMAB
     Route: 041
     Dates: start: 20201019
  3. METFORMIN [Concomitant]
     Active Substance: METFORMIN HYDROCHLORIDE
     Dates: start: 202003
  4. TAHOR [Concomitant]
     Active Substance: ATORVASTATIN CALCIUM
     Dates: start: 202003
  5. PEMBROLIZUMAB. [Suspect]
     Active Substance: PEMBROLIZUMAB
     Indication: MALIGNANT MELANOMA
     Route: 041
     Dates: start: 20200907, end: 20200907
  6. MK?1308 [Suspect]
     Active Substance: INVESTIGATIONAL PRODUCT
     Indication: MALIGNANT MELANOMA
     Route: 041
     Dates: start: 20200907, end: 20200907
  7. KARDEGIC [Concomitant]
     Active Substance: ASPIRIN DL-LYSINE
     Dates: start: 202003
  8. DIAMICRON [Concomitant]
     Active Substance: GLICLAZIDE
     Dates: start: 202003
  9. LENVATINIB [Suspect]
     Active Substance: LENVATINIB
     Indication: MALIGNANT MELANOMA
     Route: 048
     Dates: start: 20200907, end: 20200916
  10. LENVATINIB [Suspect]
     Active Substance: LENVATINIB
     Route: 048
     Dates: start: 20200921
  11. LODOZ [Concomitant]
     Active Substance: BISOPROLOL FUMARATE\HYDROCHLOROTHIAZIDE
     Dates: start: 202003
  12. TAMSULOSIN HYDROCHLORIDE. [Concomitant]
     Active Substance: TAMSULOSIN HYDROCHLORIDE
     Dates: start: 202003
  13. INEXIUM [Concomitant]
     Active Substance: ESOMEPRAZOLE
     Dates: start: 202003

REACTIONS (1)
  - Pancreatitis [Recovered/Resolved]

NARRATIVE: CASE EVENT DATE: 20200911
